FAERS Safety Report 9465147 (Version 2)
Quarter: 2013Q3

REPORT INFORMATION
  Report Type: Spontaneous
  Country: US (occurrence: US)
  Receive Date: 20130819
  Receipt Date: 20130820
  Transmission Date: 20140515
  Serious: Yes (Hospitalization)
  Sender: FDA-Public Use
  Company Number: US-B.I. PHARMACEUTICALS,INC./RIDGEFIELD-2013-BI-24865BP

PATIENT
  Age: 50 Year
  Sex: Male
  Weight: 86 kg

DRUGS (9)
  1. MICARDIS [Suspect]
     Indication: HYPERTENSION
     Dosage: 40 MG
     Route: 048
     Dates: start: 2010
  2. MICARDIS [Suspect]
     Dosage: 40 MG
     Route: 048
     Dates: start: 2012
  3. NEXUIM [Concomitant]
     Indication: GASTRIC ULCER
     Dosage: 20 MG
     Route: 048
  4. INSULIN 70/30 NOVOLOG [Concomitant]
     Indication: TYPE 1 DIABETES MELLITUS
     Route: 058
  5. METOPROLOL [Concomitant]
     Indication: HYPERTENSION
     Dosage: 200 MG
     Route: 048
  6. NAPROXEN [Concomitant]
     Indication: HEADACHE
     Route: 048
  7. BABY ASPIRIN [Concomitant]
     Dosage: 81 MG
     Route: 048
  8. HCTZ [Concomitant]
     Indication: HYPERTENSION
     Dosage: 12.5 MG
     Route: 048
  9. NORVASC [Concomitant]
     Indication: HYPERTENSION
     Dosage: 10 MG
     Route: 048

REACTIONS (3)
  - Cerebrovascular accident [Recovered/Resolved with Sequelae]
  - Dyspnoea [Recovered/Resolved]
  - Hyperparathyroidism secondary [Not Recovered/Not Resolved]
